FAERS Safety Report 7382011-X (Version None)
Quarter: 2011Q1

REPORT INFORMATION
  Report Type: 
  Country: None (occurrence: None)
  Receive Date: 20110329
  Receipt Date: 20110324
  Transmission Date: 20110831
  Serious: Yes (Other)
  Sender: FDA-Public Use
  Company Number: US-PFIZER INC-2011016701

PATIENT
  Sex: Female

DRUGS (6)
  1. TOPIRAMATE [Concomitant]
     Indication: ANTIINFLAMMATORY THERAPY
     Dosage: UNK
     Dates: start: 19970801, end: 20100901
  2. CHANTIX [Suspect]
     Indication: SMOKING CESSATION THERAPY
     Dosage: UNK
     Dates: start: 20090101, end: 20090101
  3. PAXIL [Concomitant]
     Indication: DEPRESSION
     Dosage: UNK
     Dates: start: 19940101, end: 20100901
  4. PAXIL [Concomitant]
     Indication: ANXIETY
  5. LYRICA [Concomitant]
     Indication: NEURALGIA
     Dosage: UNK
     Dates: start: 20000701, end: 20100901
  6. OXYCONTIN [Concomitant]
     Indication: PAIN MANAGEMENT
     Dosage: UNK
     Dates: start: 20000701, end: 20100901

REACTIONS (5)
  - INTENTIONAL OVERDOSE [None]
  - ANXIETY [None]
  - MENTAL DISORDER [None]
  - SUICIDE ATTEMPT [None]
  - DEPRESSION [None]
